FAERS Safety Report 15275577 (Version 1)
Quarter: 2018Q3

REPORT INFORMATION
  Report Type: Spontaneous
  Country: SE (occurrence: SE)
  Receive Date: 20180814
  Receipt Date: 20180814
  Transmission Date: 20181010
  Serious: Yes (Disabling)
  Sender: FDA-Public Use
  Company Number: SE-CONCORDIA PHARMACEUTICALS INC.-E2B_00015982

PATIENT
  Age: 52 Year
  Sex: Female

DRUGS (8)
  1. AMLODIPIN [Concomitant]
     Active Substance: AMLODIPINE BESYLATE
  2. PREDNISOLONE. [Suspect]
     Active Substance: PREDNISOLONE
  3. OMEPRAZOL [Concomitant]
     Active Substance: OMEPRAZOLE
  4. PREDNISOLONE. [Suspect]
     Active Substance: PREDNISOLONE
  5. PREDNISOLONE. [Suspect]
     Active Substance: PREDNISOLONE
  6. IMOVANE [Concomitant]
     Active Substance: ZOPICLONE
  7. PREDNISOLONE. [Suspect]
     Active Substance: PREDNISOLONE
     Indication: THYROIDITIS
  8. ENALAPRIL [Concomitant]
     Active Substance: ENALAPRIL

REACTIONS (1)
  - Cortisol deficiency [Recovered/Resolved with Sequelae]

NARRATIVE: CASE EVENT DATE: 20131213
